FAERS Safety Report 8396521-X (Version None)
Quarter: 2012Q1

REPORT INFORMATION
  Report Type: 
  Country: None (occurrence: None)
  Receive Date: 20120323
  Receipt Date: 20110830
  Transmission Date: 20120608
  Serious: Yes (Other)
  Sender: FDA-Public Use
  Company Number: 163-21880-11040045

PATIENT
  Age: 41 Year
  Sex: Male
  Weight: 84.5051 kg

DRUGS (5)
  1. LASIX (FUOSEMIDE) (UNKNOWN) [Concomitant]
  2. ASPIRIN [Concomitant]
  3. DECADRON [Concomitant]
  4. REVLIMID [Suspect]
     Indication: POEMS SYNDROME
     Dosage: 25 MG, DAILY FOR 21 DAYS OUT OF 28, PO
     Route: 048
     Dates: start: 20110320, end: 20110322
  5. REVLIMID [Suspect]
     Indication: CASTLEMAN'S DISEASE
     Dosage: 25 MG, DAILY FOR 21 DAYS OUT OF 28, PO
     Route: 048
     Dates: start: 20110320, end: 20110322

REACTIONS (1)
  - HYPERSENSITIVITY [None]
